FAERS Safety Report 19486911 (Version 4)
Quarter: 2021Q4

REPORT INFORMATION
  Report Type: Spontaneous
  Country: HU (occurrence: HU)
  Receive Date: 20210702
  Receipt Date: 20211229
  Transmission Date: 20220303
  Serious: Yes (Hospitalization, Other)
  Sender: FDA-Public Use
  Company Number: HU-SUN PHARMACEUTICAL INDUSTRIES LTD-2021R1-302115

PATIENT
  Age: 29 Year
  Sex: Male

DRUGS (1)
  1. CLOZAPINE [Suspect]
     Active Substance: CLOZAPINE
     Indication: Schizophrenia
     Dosage: 175 MILLIGRAM, DAILY
     Route: 065
     Dates: start: 2019

REACTIONS (3)
  - Drug withdrawal syndrome [Unknown]
  - Neuroleptic malignant syndrome [Unknown]
  - Therapy cessation [Unknown]
